FAERS Safety Report 8409483-3 (Version None)
Quarter: 2012Q2

REPORT INFORMATION
  Report Type: 
  Country: None (occurrence: None)
  Receive Date: 20120531
  Receipt Date: 20120531
  Transmission Date: 20120825
  Serious: Yes (Life-Threatening)
  Sender: FDA-Public Use
  Company Number: None

PATIENT
  Age: 57 Year
  Sex: Male
  Weight: 77.1115 kg

DRUGS (2)
  1. LEVOFLOXACIN [Suspect]
     Indication: OROPHARYNGEAL PAIN
     Dosage: 1 DAY 750MG
     Dates: start: 20120426, end: 20120428
  2. LEVOFLOXACIN [Suspect]
     Indication: DYSPHAGIA
     Dosage: 1 DAY 750MG
     Dates: start: 20120426, end: 20120428

REACTIONS (3)
  - PHARYNGEAL OEDEMA [None]
  - SWELLING FACE [None]
  - DYSPNOEA [None]
